FAERS Safety Report 7411960-9 (Version None)
Quarter: 2011Q2

REPORT INFORMATION
  Report Type: 
  Country: None (occurrence: None)
  Receive Date: 20110413
  Receipt Date: 20091122
  Transmission Date: 20111010
  Serious: Yes (Death, Other)
  Sender: FDA-Public Use
  Company Number: US-BAYER-200940615NA

PATIENT
  Age: 73 Year
  Sex: Male
  Weight: 108.39 kg

DRUGS (31)
  1. VERSED [Concomitant]
     Dosage: 2 MG, UNK
     Route: 042
     Dates: start: 20060211
  2. PROTAMINE SULFATE [Concomitant]
     Dosage: 720 MG, UNK
     Route: 042
     Dates: start: 20060216
  3. NITROGLYCERIN [Concomitant]
     Dosage: UNK
     Route: 061
     Dates: start: 20060208
  4. LASIX [Concomitant]
     Dosage: 20 MG, UNK
     Route: 042
     Dates: start: 20060211
  5. ZOCOR [Concomitant]
     Route: 048
  6. PAXIL [Concomitant]
     Route: 048
  7. HEPARIN [Concomitant]
     Dosage: 10000 U,IN 1000 ML OF RINGER'S LACTATE
     Route: 042
     Dates: start: 20060216
  8. FENTANYL [Concomitant]
     Dosage: 100 MCG
     Route: 042
     Dates: start: 20060211
  9. SODIUM BICARBONATE [Concomitant]
     Dosage: 2 AMPS
     Route: 042
  10. NITROGLYCERIN [Concomitant]
     Dosage: UNK
     Route: 048
  11. HEPARIN [Concomitant]
     Dosage: 45000 U, UNK
     Route: 042
     Dates: start: 20060216
  12. PLASMA [Concomitant]
     Dosage: 2 U, UNK
     Route: 042
     Dates: start: 20060216
  13. NORMAL SALINE [Concomitant]
     Dosage: 4500 ML, UNK
     Route: 042
     Dates: start: 20060226
  14. TRASYLOL [Suspect]
     Indication: CORONARY ARTERY BYPASS
     Dosage: 1 ML, TEST DOSE
     Route: 042
     Dates: start: 20060216, end: 20060216
  15. LISINOPRIL [Concomitant]
     Route: 048
  16. LASIX [Concomitant]
     Route: 048
  17. PLATELETS [Concomitant]
     Dosage: 2 U, UNK
     Route: 042
     Dates: start: 20060216
  18. TRASYLOL [Suspect]
     Indication: HEART VALVE REPLACEMENT
     Dosage: 200 ML LOADING DOSE
     Dates: start: 20060216, end: 20060216
  19. TRASYLOL [Suspect]
     Dosage: 50CC/HR
     Dates: start: 20060216, end: 20060216
  20. FLOMAX [Concomitant]
     Route: 048
  21. ACETYLSALICYLIC ACID SRT [Concomitant]
     Route: 048
  22. ACETYLCYSTEINE [Concomitant]
     Dosage: UNK
     Route: 048
     Dates: start: 20060210
  23. ANCEF [Concomitant]
     Dosage: 1 G, UNK
     Route: 042
     Dates: start: 20060216
  24. WHOLE BLOOD [Concomitant]
     Dosage: 2 U, UNK
     Route: 042
     Dates: start: 20060216
  25. PAPAVERINE [Concomitant]
     Dosage: 60 MG, UNK
     Route: 042
     Dates: start: 20060216
  26. POTASSIUM CHLORIDE [Concomitant]
     Route: 048
  27. HEPARIN [Concomitant]
     Dosage: UNK
     Route: 042
     Dates: start: 20060208
  28. HEPARIN [Concomitant]
     Dosage: 4000 U, UNK
     Route: 042
     Dates: start: 20060211
  29. DOBUTAMINE HCL [Concomitant]
     Dosage: 5 MCG
     Route: 042
  30. LACTATED RINGER'S [Concomitant]
     Dosage: 1000 ML, UNK
     Route: 042
     Dates: start: 20060216
  31. RED BLOOD CELLS [Concomitant]
     Dosage: 6 U, UNK
     Dates: start: 20060216

REACTIONS (13)
  - STRESS [None]
  - UNEVALUABLE EVENT [None]
  - PAIN [None]
  - INJURY [None]
  - RENAL IMPAIRMENT [None]
  - RENAL FAILURE [None]
  - ANHEDONIA [None]
  - MULTI-ORGAN FAILURE [None]
  - RENAL INJURY [None]
  - ANXIETY [None]
  - DEATH [None]
  - EMOTIONAL DISTRESS [None]
  - FEAR [None]
